FAERS Safety Report 19687663 (Version 1)
Quarter: 2021Q3

REPORT INFORMATION
  Report Type: Spontaneous
  Country: JP (occurrence: JP)
  Receive Date: 20210811
  Receipt Date: 20210811
  Transmission Date: 20211014
  Serious: Yes (Other)
  Sender: FDA-Public Use
  Company Number: JP-AMERICAN REGENT INC-2021001525

PATIENT
  Age: 41 Year
  Sex: Female
  Weight: 58 kg

DRUGS (3)
  1. ESTRADIOL BENZOATE W/HYDROXYPROGESTERONE CAPR [Concomitant]
     Indication: HEAVY MENSTRUAL BLEEDING
     Dosage: UNK
     Route: 030
     Dates: start: 20210511
  2. ESTRADIOL BENZOATE W/HYDROXYPROGESTERONE CAPR [Concomitant]
     Indication: ANAEMIA
  3. FERINJECT [Suspect]
     Active Substance: FERRIC CARBOXYMALTOSE
     Indication: IRON DEFICIENCY ANAEMIA
     Dosage: 500 MG
     Dates: start: 20210522, end: 20210522

REACTIONS (6)
  - Pruritus [Recovered/Resolved]
  - Angioedema [Recovered/Resolved]
  - Generalised oedema [Recovered/Resolved]
  - Rash [Recovered/Resolved]
  - Urticaria [Recovered/Resolved]
  - Blood pressure increased [Recovered/Resolved]

NARRATIVE: CASE EVENT DATE: 20210522
